FAERS Safety Report 7420206-7 (Version None)
Quarter: 2011Q2

REPORT INFORMATION
  Report Type: 
  Country: None (occurrence: None)
  Receive Date: 20110407
  Receipt Date: 20110322
  Transmission Date: 20111010
  Serious: Yes (Hospitalization)
  Sender: FDA-Public Use
  Company Number: 2011SP013228

PATIENT
  Age: 28 Year
  Sex: Male

DRUGS (3)
  1. RIBAVIRIN [Suspect]
     Indication: HEPATITIS C
     Dosage: 1000 MG; PO
     Route: 048
  2. PEGINTERFERON ALFA-2A [Suspect]
     Indication: HEPATITIS C
     Dosage: 80 MCG; QW
  3. URSODEOXICOLIC ACID [Concomitant]

REACTIONS (8)
  - HAEMOPHILUS TEST POSITIVE [None]
  - SPUTUM CULTURE POSITIVE [None]
  - DECREASED APPETITE [None]
  - RESPIRATORY DISORDER [None]
  - WEIGHT DECREASED [None]
  - ASTHENIA [None]
  - ANTIBIOTIC RESISTANT STAPHYLOCOCCUS TEST POSITIVE [None]
  - LIVER DISORDER [None]
